FAERS Safety Report 15296011 (Version 1)
Quarter: 2018Q3

REPORT INFORMATION
  Report Type: Spontaneous
  Country: ES (occurrence: ES)
  Receive Date: 20180820
  Receipt Date: 20180820
  Transmission Date: 20181010
  Serious: Yes (Other)
  Sender: FDA-Public Use
  Company Number: ES-MYLANLABS-2018M1061454

PATIENT
  Age: 37 Year
  Sex: Male

DRUGS (4)
  1. SORAFENIB [Suspect]
     Active Substance: SORAFENIB
     Dosage: 600 MG/DAY FOR TWO WEEKS
     Route: 048
  2. SORAFENIB [Suspect]
     Active Substance: SORAFENIB
     Indication: PAPILLARY THYROID CANCER
     Dosage: 400 MG, Q12H
     Route: 048
  3. DOXORUBICIN [Suspect]
     Active Substance: DOXORUBICIN
     Indication: PAPILLARY THYROID CANCER
     Dosage: 20 MG/M2, QW
     Route: 042
  4. SORAFENIB [Suspect]
     Active Substance: SORAFENIB
     Dosage: 400 MG, QD
     Route: 048

REACTIONS (7)
  - Folliculitis [Unknown]
  - Skin toxicity [Unknown]
  - Lymphopenia [Unknown]
  - Migraine [Unknown]
  - Erythema [Unknown]
  - Mucosal inflammation [Unknown]
  - Face oedema [Unknown]
